FAERS Safety Report 4558092-5 (Version None)
Quarter: 2005Q1

REPORT INFORMATION
  Report Type: 
  Country: None (occurrence: None)
  Receive Date: 20050121
  Receipt Date: 20040223
  Transmission Date: 20050727
  Serious: No
  Sender: FDA-Public Use
  Company Number: US-BRISTOL-MYERS SQUIBB COMPANY-12744157

PATIENT
  Sex: Male

DRUGS (9)
  1. SERZONE [Suspect]
     Route: 048
     Dates: start: 20010508, end: 20020901
  2. LORAZEPAM [Concomitant]
  3. NEURONTIN [Concomitant]
  4. ATENOLOL [Concomitant]
  5. AMITRIPTYLINE [Concomitant]
  6. OXYCONTIN [Concomitant]
  7. SALSALATE [Concomitant]
  8. HYDROCHLOROTHIAZIDE [Concomitant]
  9. ALBUTEROL [Concomitant]

REACTIONS (9)
  - ARTHRALGIA [None]
  - BLOOD ALKALINE PHOSPHATASE INCREASED [None]
  - GAMMA-GLUTAMYLTRANSFERASE INCREASED [None]
  - HEPATIC STEATOSIS [None]
  - INSOMNIA [None]
  - PERONEAL NERVE PALSY [None]
  - SPINAL OSTEOARTHRITIS [None]
  - SYNCOPE [None]
  - VERTIGO [None]
